FAERS Safety Report 5452154-6 (Version None)
Quarter: 2007Q3

REPORT INFORMATION
  Report Type: 
  Country: None (occurrence: None)
  Receive Date: 20070912
  Receipt Date: 20070912
  Transmission Date: 20080115
  Serious: Yes (Other)
  Sender: FDA-Public Use
  Company Number: None

PATIENT
  Sex: Female

DRUGS (1)
  1. HYDROCODONE BITARTRATE [Suspect]
     Indication: INTERVERTEBRAL DISC DEGENERATION
     Dosage: 5-750 MG EVERY 4 HRS
     Dates: start: 20060901, end: 20061002

REACTIONS (3)
  - BEDRIDDEN [None]
  - DRUG INEFFECTIVE [None]
  - PAIN [None]
